FAERS Safety Report 15367237 (Version 1)
Quarter: 2018Q3

REPORT INFORMATION
  Report Type: Spontaneous
  Country: US (occurrence: US)
  Receive Date: 20180903
  Receipt Date: 20180903
  Transmission Date: 20181010
  Serious: Yes (Other)
  Sender: FDA-Public Use
  Company Number: None

PATIENT
  Age: 19 Year
  Sex: Male
  Weight: 48.6 kg

DRUGS (13)
  1. KEPPRA [Suspect]
     Active Substance: LEVETIRACETAM
  2. MUCINEX [Concomitant]
     Active Substance: GUAIFENESIN
  3. VALPROIC ACID. [Concomitant]
     Active Substance: VALPROIC ACID
  4. BACIOFEN (PUMP) [Concomitant]
  5. CLONAZAPAM [Suspect]
     Active Substance: CLONAZEPAM
     Indication: SEIZURE
     Dosage: ?          QUANTITY:3 TABLET(S);OTHER ROUTE:G TUBE?
     Dates: start: 20180701, end: 20180828
  6. QVAR [Concomitant]
     Active Substance: BECLOMETHASONE DIPROPIONATE
  7. CARNITOR [Concomitant]
     Active Substance: LEVOCARNITINE
  8. ZEGARID [Concomitant]
  9. ATROVENT [Concomitant]
     Active Substance: IPRATROPIUM BROMIDE
  10. ROBINUL [Concomitant]
     Active Substance: GLYCOPYRROLATE
  11. CLONAZAPAM [Suspect]
     Active Substance: CLONAZEPAM
  12. ALBUTEROL. [Concomitant]
     Active Substance: ALBUTEROL
  13. PAIN MEDS PRN [Concomitant]

REACTIONS (8)
  - Hyperventilation [None]
  - Psychotic disorder [None]
  - Product substitution issue [None]
  - Insomnia [None]
  - Product quality issue [None]
  - Agitation [None]
  - Hyperhidrosis [None]
  - Withdrawal syndrome [None]

NARRATIVE: CASE EVENT DATE: 20180701
